FAERS Safety Report 15108857 (Version 4)
Quarter: 2019Q1

REPORT INFORMATION
  Report Type: Spontaneous
  Country: FR (occurrence: FR)
  Receive Date: 20180705
  Receipt Date: 20190312
  Transmission Date: 20190417
  Serious: Yes (Death, Life-Threatening, Hospitalization)
  Sender: FDA-Public Use
  Company Number: FR-ACCORD-069107

PATIENT
  Age: 62 Year
  Sex: Female
  Weight: 52 kg

DRUGS (10)
  1. EMEND [Suspect]
     Active Substance: APREPITANT
     Indication: ANTIEMETIC SUPPORTIVE CARE
     Dosage: 125 MG, UNKNOWN
     Route: 048
     Dates: start: 20180517, end: 20180517
  2. AVASTIN [Suspect]
     Active Substance: BEVACIZUMAB
     Indication: LUNG ADENOCARCINOMA
     Dosage: 7.5 MG/KG, CYCLICAL
     Route: 042
     Dates: start: 20180517, end: 20180517
  3. CISPLATIN. [Concomitant]
     Active Substance: CISPLATIN
     Indication: BRONCHIAL CARCINOMA
     Dosage: 75 MG/M2, CYCLICAL
     Route: 042
     Dates: start: 20180517, end: 20180517
  4. DEXAMETHASONE. [Concomitant]
     Active Substance: DEXAMETHASONE
     Dosage: 4 MG, BID
     Route: 065
  5. CISPLATIN. [Suspect]
     Active Substance: CISPLATIN
     Indication: LUNG ADENOCARCINOMA
     Dosage: ALSO RECEIVED 75 MG/M2 FROM 17-MAY-2018 TO 17-MAY-2018, AND UNK DOSE ON UNK DATE
     Route: 042
     Dates: start: 20180517, end: 20180517
  6. ONDANSETRON ACCORD [Suspect]
     Active Substance: ONDANSETRON
     Indication: ANTIEMETIC SUPPORTIVE CARE
     Dosage: 8 MG, UNKNOWN
     Route: 042
     Dates: start: 20180517, end: 20180517
  7. METHYLPREDNISOLONE MYLAN [Suspect]
     Active Substance: METHYLPREDNISOLONE
     Indication: ANTIEMETIC SUPPORTIVE CARE
     Dosage: 52 MG, UNKNOWN
     Route: 042
     Dates: start: 20180517, end: 20180517
  8. CYANOCOBALAMIN/FOLIC ACID [Concomitant]
     Dosage: UNK, EVERY NINE WEEKS
     Route: 065
  9. AVASTIN [Concomitant]
     Active Substance: BEVACIZUMAB
     Indication: LUNG ADENOCARCINOMA
  10. ALIMTA [Suspect]
     Active Substance: PEMETREXED DISODIUM
     Indication: LUNG ADENOCARCINOMA
     Dosage: ALSO RECEIVED 761.9 MG (POWDER FOR SOLUTION FOR INFUSION) FROM 17-MAY-2018 TO 17-MAY-2018
     Route: 042
     Dates: start: 20180517, end: 20180517

REACTIONS (10)
  - Sepsis [Fatal]
  - Dyspnoea [Unknown]
  - Hypotension [Unknown]
  - Hyperkalaemia [Fatal]
  - Tachypnoea [Unknown]
  - Hyperhidrosis [Unknown]
  - Bone marrow failure [Fatal]
  - Acute kidney injury [Fatal]
  - Oxygen saturation decreased [Unknown]
  - General physical health deterioration [Unknown]

NARRATIVE: CASE EVENT DATE: 201805
